FAERS Safety Report 8260296-5 (Version None)
Quarter: 2012Q2

REPORT INFORMATION
  Report Type: 
  Country: None (occurrence: None)
  Receive Date: 20120404
  Receipt Date: 20120327
  Transmission Date: 20120825
  Serious: Yes (Other)
  Sender: FDA-Public Use
  Company Number: DK-ROCHE-GNE263344

PATIENT
  Sex: Female

DRUGS (4)
  1. RANIBIZUMAB [Suspect]
     Indication: CHOROIDAL NEOVASCULARISATION
  2. PLACEBO [Suspect]
     Indication: AGE-RELATED MACULAR DEGENERATION
     Dosage: 30 ML, UNK
     Dates: start: 20070917, end: 20080613
  3. RANIBIZUMAB [Suspect]
     Indication: AGE-RELATED MACULAR DEGENERATION
     Dosage: UNK ML, UNK
     Dates: start: 20070917, end: 20080613
  4. PLACEBO [Suspect]
     Indication: CHOROIDAL NEOVASCULARISATION

REACTIONS (2)
  - RETINAL OEDEMA [None]
  - VISUAL IMPAIRMENT [None]
